FAERS Safety Report 8891559 (Version 1)
Quarter: 2012Q4

REPORT INFORMATION
  Report Type: 
  Country: US (occurrence: US)
  Receive Date: 20121107
  Receipt Date: 20121107
  Transmission Date: 20130627
  Serious: No
  Sender: FDA-Public Use
  Company Number: US-AMGEN-USASP2011048575

PATIENT
  Age: 78 Year
  Sex: Female
  Weight: 76.19 kg

DRUGS (6)
  1. ENBREL [Suspect]
     Indication: PRODUCT USED FOR UNKNOWN INDICATION
     Dosage: 50 mg, qwk
     Route: 058
  2. SERTRALINE [Concomitant]
     Dosage: 25 mg, UNK
  3. LOVAZA [Concomitant]
     Dosage: 1 g, UNK
  4. CYCLOBENZAPRIN HYDROCHLORIDE [Concomitant]
     Dosage: 5 mg, UNK
  5. MULTIPLE VITAMINS [Concomitant]
  6. VYTORIN [Concomitant]
     Dosage: 10 mg, UNK

REACTIONS (2)
  - Cough [Not Recovered/Not Resolved]
  - Respiratory disorder [Not Recovered/Not Resolved]
